FAERS Safety Report 6216030-3 (Version None)
Quarter: 2009Q2

REPORT INFORMATION
  Report Type: 
  Country: None (occurrence: None)
  Receive Date: 20090605
  Receipt Date: 20090602
  Transmission Date: 20091009
  Serious: Yes (Life-Threatening)
  Sender: FDA-Public Use
  Company Number: FR-BRISTOL-MYERS SQUIBB COMPANY-14646681

PATIENT
  Age: 11 Year
  Sex: Male
  Weight: 53 kg

DRUGS (4)
  1. FUNGIZONE [Suspect]
     Indication: OPEN FRACTURE
     Route: 048
     Dates: start: 20090311
  2. CLAVENTIN [Suspect]
     Indication: OPEN FRACTURE
     Route: 042
     Dates: start: 20090330, end: 20090402
  3. VANCOMYCIN HCL [Suspect]
     Indication: OPEN FRACTURE
     Dosage: VANCOMYCINE ALPHARMA
     Route: 042
     Dates: start: 20090303
  4. RIFADIN [Suspect]
     Indication: OPEN FRACTURE
     Route: 042
     Dates: start: 20090303

REACTIONS (2)
  - LEUKOPENIA [None]
  - NEUTROPENIA [None]
